FAERS Safety Report 12307568 (Version 1)
Quarter: 2016Q2

REPORT INFORMATION
  Report Type: Spontaneous
  Country: US (occurrence: US)
  Receive Date: 20160426
  Receipt Date: 20160426
  Transmission Date: 20160815
  Serious: No
  Sender: FDA-Public Use
  Company Number: US-ALKERMES INC.-ALK-2015-001023

PATIENT

DRUGS (4)
  1. ALBUTEROL. [Concomitant]
     Active Substance: ALBUTEROL
     Indication: ASTHMA
     Dosage: UNK
  2. ZOLOFT [Concomitant]
     Active Substance: SERTRALINE HYDROCHLORIDE
     Indication: DEPRESSION
     Dosage: 100 MG, UNK
  3. VIVITROL [Suspect]
     Active Substance: NALTREXONE
     Indication: ALCOHOLISM
     Dosage: 380 MG, QMO
     Route: 030
     Dates: start: 20150727
  4. NEXIUM [Concomitant]
     Active Substance: ESOMEPRAZOLE MAGNESIUM
     Indication: GASTROOESOPHAGEAL REFLUX DISEASE
     Dosage: 40 MG, UNK

REACTIONS (10)
  - Gait disturbance [Recovered/Resolved]
  - Wrong device used [Recovered/Resolved]
  - Alcohol use [Not Recovered/Not Resolved]
  - Activities of daily living impaired [Recovered/Resolved]
  - Injection site reaction [Recovered/Resolved]
  - Drug effect decreased [Not Recovered/Not Resolved]
  - Injection site pain [Recovered/Resolved]
  - Product reconstitution issue [Recovered/Resolved]
  - Liquid product physical issue [None]
  - Needle issue [Recovered/Resolved]

NARRATIVE: CASE EVENT DATE: 2015
